FAERS Safety Report 6398414-6 (Version None)
Quarter: 2009Q4

REPORT INFORMATION
  Report Type: 
  Country: None (occurrence: None)
  Receive Date: 20091007
  Receipt Date: 20090924
  Transmission Date: 20100525
  Serious: Yes (Other)
  Sender: FDA-Public Use
  Company Number: 230127J09BRA

PATIENT
  Age: 56 Year
  Sex: Female

DRUGS (6)
  1. REBIF [Suspect]
     Indication: RELAPSING-REMITTING MULTIPLE SCLEROSIS
     Dosage: 22 MCG, 3 IN 1 WEEKS
     Dates: start: 20070705
  2. OTHERS (ALL OTHER THERAPEUTIC PRODUCTS) [Concomitant]
  3. AMITRIPTYLINE HCL [Concomitant]
  4. PROPANOLOL (PROPANOLOL /00030001/) [Concomitant]
  5. PAROXETINE HCL [Concomitant]
  6. RIVOTRIL (CLONAZEPAM) [Concomitant]

REACTIONS (12)
  - ANXIETY [None]
  - ASTHENIA [None]
  - FALL [None]
  - FATIGUE [None]
  - HEADACHE [None]
  - HYPOAESTHESIA [None]
  - LIGAMENT RUPTURE [None]
  - MUSCULAR WEAKNESS [None]
  - MUSCULOSKELETAL DISORDER [None]
  - NERVOUSNESS [None]
  - SENSATION OF HEAVINESS [None]
  - UPPER LIMB FRACTURE [None]
